FAERS Safety Report 25093078 (Version 1)
Quarter: 2025Q1

REPORT INFORMATION
  Report Type: Other
  Country: FR (occurrence: FR)
  Receive Date: 20250319
  Receipt Date: 20250319
  Transmission Date: 20250409
  Serious: Yes (Hospitalization)
  Sender: ZYDUS PHARM
  Company Number: None

PATIENT

DRUGS (1)
  1. PAROXETINE [Suspect]
     Active Substance: PAROXETINE
     Indication: Mixed anxiety and depressive disorder
     Route: 048
     Dates: start: 20240401, end: 20241021

REACTIONS (1)
  - Reversible cerebral vasoconstriction syndrome [Recovered/Resolved]

NARRATIVE: CASE EVENT DATE: 20241018
